FAERS Safety Report 10202649 (Version 2)
Quarter: 2014Q3

REPORT INFORMATION
  Report Type: Spontaneous
  Country: US (occurrence: US)
  Receive Date: 20140528
  Receipt Date: 20140905
  Transmission Date: 20150326
  Serious: No
  Sender: FDA-Public Use
  Company Number: US-009507513-1405USA002929

PATIENT
  Sex: Female

DRUGS (1)
  1. MIRALAX [Suspect]
     Active Substance: POLYETHYLENE GLYCOL 3350
     Indication: PRODUCT USED FOR UNKNOWN INDICATION
     Dosage: 25.5 G, UNKNOWN
     Route: 048

REACTIONS (5)
  - Abdominal distension [Unknown]
  - Drug prescribing error [Unknown]
  - Drug effect decreased [Unknown]
  - Diarrhoea [Not Recovered/Not Resolved]
  - Overdose [Unknown]
